FAERS Safety Report 22305391 (Version 1)
Quarter: 2023Q2

REPORT INFORMATION
  Report Type: Spontaneous
  Country: IT (occurrence: IT)
  Receive Date: 20230510
  Receipt Date: 20230510
  Transmission Date: 20230721
  Serious: Yes (Death)
  Sender: FDA-Public Use
  Company Number: IT-BIOGEN-2023BI01201477

PATIENT
  Age: 56 Year
  Sex: Female

DRUGS (9)
  1. TOFERSEN [Suspect]
     Active Substance: TOFERSEN
     Indication: Familial amyotrophic lateral sclerosis
     Route: 050
     Dates: start: 20230126
  2. TOFERSEN [Suspect]
     Active Substance: TOFERSEN
     Route: 050
     Dates: start: 20230226
  3. TOFERSEN [Suspect]
     Active Substance: TOFERSEN
     Route: 050
     Dates: start: 20230209
  4. RILUZOLE [Concomitant]
     Active Substance: RILUZOLE
     Indication: Product used for unknown indication
     Route: 050
     Dates: start: 20220701
  5. PRAMIPEXOLE [Concomitant]
     Active Substance: PRAMIPEXOLE
     Indication: Product used for unknown indication
     Route: 050
     Dates: start: 20220801
  6. TIROSINT [Concomitant]
     Active Substance: LEVOTHYROXINE SODIUM
     Indication: Product used for unknown indication
     Route: 050
     Dates: start: 2011
  7. AMITRIPTYLINE HYDROCHLORIDE [Concomitant]
     Active Substance: AMITRIPTYLINE HYDROCHLORIDE
     Indication: Product used for unknown indication
     Route: 050
     Dates: start: 20220909
  8. SCOPOLAMINE [Concomitant]
     Active Substance: SCOPOLAMINE
     Indication: Product used for unknown indication
     Route: 050
     Dates: start: 20220909
  9. ASPIRIN [Concomitant]
     Active Substance: ASPIRIN
     Indication: Product used for unknown indication
     Route: 050
     Dates: start: 2009

REACTIONS (1)
  - Acute respiratory failure [Fatal]

NARRATIVE: CASE EVENT DATE: 20230226
